FAERS Safety Report 8901559 (Version 1)
Quarter: 2012Q4

REPORT INFORMATION
  Report Type: 
  Country: US (occurrence: US)
  Receive Date: 20121108
  Receipt Date: 20121108
  Transmission Date: 20130627
  Serious: No
  Sender: FDA-Public Use
  Company Number: US-TEVA-369108USA

PATIENT
  Sex: Female

DRUGS (2)
  1. COPAXONE [Suspect]
     Indication: MULTIPLE SCLEROSIS
     Dosage: varies
     Dates: start: 2010
  2. NEURONTIN [Concomitant]
     Indication: PAIN

REACTIONS (3)
  - Tremor [Not Recovered/Not Resolved]
  - Pyrexia [Unknown]
  - Hyperhidrosis [Not Recovered/Not Resolved]
